FAERS Safety Report 13556834 (Version 1)
Quarter: 2017Q2

REPORT INFORMATION
  Report Type: Spontaneous
  Country: US (occurrence: US)
  Receive Date: 20170517
  Receipt Date: 20170517
  Transmission Date: 20170830
  Serious: Yes (Other)
  Sender: FDA-Public Use
  Company Number: None

PATIENT
  Age: 69 Year
  Sex: Female
  Weight: 90.72 kg

DRUGS (1)
  1. ORENCIA [Suspect]
     Active Substance: ABATACEPT
     Indication: RHEUMATOID ARTHRITIS
     Route: 058
     Dates: start: 20170419

REACTIONS (5)
  - Feeling hot [None]
  - Drug ineffective [None]
  - Peripheral swelling [None]
  - Condition aggravated [None]
  - Fatigue [None]

NARRATIVE: CASE EVENT DATE: 20170419
